FAERS Safety Report 8366354-9 (Version None)
Quarter: 2012Q2

REPORT INFORMATION
  Report Type: 
  Country: None (occurrence: None)
  Receive Date: 20120517
  Receipt Date: 20120511
  Transmission Date: 20120825
  Serious: Yes (Hospitalization)
  Sender: FDA-Public Use
  Company Number: US-BAYER-2012-047250

PATIENT
  Age: 40 Year
  Sex: Female

DRUGS (4)
  1. DROSPIRENONE AND ETHINYL ESTRADIOL [Suspect]
  2. YAZ [Suspect]
  3. YASMIN [Suspect]
     Indication: CONTRACEPTION
  4. PROPRANOLOL [Concomitant]
     Indication: ARRHYTHMIA SUPRAVENTRICULAR
     Dosage: 20 MG, UNK

REACTIONS (2)
  - PULMONARY EMBOLISM [None]
  - DEEP VEIN THROMBOSIS [None]
